FAERS Safety Report 13564090 (Version 1)
Quarter: 2017Q2

REPORT INFORMATION
  Report Type: Spontaneous
  Country: US (occurrence: US)
  Receive Date: 20170519
  Receipt Date: 20170519
  Transmission Date: 20170830
  Serious: No
  Sender: FDA-Public Use
  Company Number: US-GLAXOSMITHKLINE-US2017GSK073091

PATIENT
  Sex: Female

DRUGS (2)
  1. LAMICTAL [Suspect]
     Active Substance: LAMOTRIGINE
     Indication: BIPOLAR DISORDER
     Dosage: 100 MG, BID
     Route: 048
     Dates: start: 20161020
  2. LAMICTAL [Suspect]
     Active Substance: LAMOTRIGINE
     Indication: SCHIZOPHRENIA

REACTIONS (3)
  - Wrong technique in product usage process [Unknown]
  - Intentional underdose [Unknown]
  - Drug dose omission [Unknown]
